FAERS Safety Report 15534791 (Version 1)
Quarter: 2018Q4

REPORT INFORMATION
  Report Type: Spontaneous
  Country: GB (occurrence: GB)
  Receive Date: 20181022
  Receipt Date: 20181022
  Transmission Date: 20190205
  Serious: Yes (Other)
  Sender: FDA-Public Use
  Company Number: GB-TEVA-2018-GB-966714

PATIENT
  Age: 1 Year
  Sex: Male
  Weight: 12 kg

DRUGS (12)
  1. BETNOVATE [Concomitant]
     Active Substance: BETAMETHASONE
     Indication: ECZEMA
     Dosage: APPLY TO PATCHES OF ECZEMA ON THE BODY
     Route: 065
     Dates: start: 20170717, end: 20180712
  2. BALNEUM [Concomitant]
     Dosage: 2 DOSAGE FORMS DAILY; APPLY
     Route: 065
     Dates: start: 20180705
  3. MONTELUKAST [Suspect]
     Active Substance: MONTELUKAST SODIUM
     Route: 065
     Dates: start: 20180921
  4. ZEROBASE [Concomitant]
     Dosage: THIS IS THE SAME AS CETRABAN: AIM TO USE 250G
     Route: 065
     Dates: start: 20170717
  5. CLOBETASOL PROPIONATE. [Concomitant]
     Active Substance: CLOBETASOL PROPIONATE
     Dosage: APPLY THINLY, TO THE AFFECTED AREA(S)
     Route: 065
     Dates: start: 20180726, end: 20180823
  6. CHLORPHENAMINE [Concomitant]
     Active Substance: CHLORPHENIRAMINE MALEATE
     Dosage: UP TO TWICE
     Route: 065
     Dates: start: 20180417
  7. HYDROCORTISONE. [Concomitant]
     Active Substance: HYDROCORTISONE
     Indication: ECZEMA
     Dosage: APPLY SPARINGLY 2-3 TIMES WEEKLY TO AREAS OF ECZEMA
     Route: 065
     Dates: start: 20170717
  8. EPADERM [Concomitant]
     Active Substance: MINERAL OIL\PETROLATUM\WAX, EMULSIFYING
     Dosage: USE AS DIRECTED
     Route: 065
     Dates: start: 20180705
  9. CLARITHROMYCIN. [Concomitant]
     Active Substance: CLARITHROMYCIN
     Route: 065
     Dates: start: 20180705, end: 20180712
  10. SALBUTAMOL [Concomitant]
     Active Substance: ALBUTEROL
     Dosage: ONE OR TWO PUFFS
     Route: 055
     Dates: start: 20180726
  11. MOMETASONE [Concomitant]
     Active Substance: MOMETASONE
     Dosage: APPLY DAILY IN SHORT BURSTS
     Route: 065
     Dates: start: 20180705
  12. DERMOL [Concomitant]
     Active Substance: BENZALKONIUM CHLORIDE\CHLORHEXIDINE HYDROCHLORIDE\ISOPROPYL MYRISTATE\PARAFFIN
     Dosage: (USE ONLY IF ANTIMICROBIAL FUNCTION REQUIRED)
     Route: 065
     Dates: start: 20170717

REACTIONS (2)
  - Wheezing [Unknown]
  - Eczema [Unknown]

NARRATIVE: CASE EVENT DATE: 20180921
